FAERS Safety Report 6468620-0 (Version None)
Quarter: 2009Q4

REPORT INFORMATION
  Report Type: 
  Country: None (occurrence: None)
  Receive Date: 20091203
  Receipt Date: 20091124
  Transmission Date: 20100525
  Serious: Yes (Hospitalization)
  Sender: FDA-Public Use
  Company Number: JP-ROCHE-667077

PATIENT
  Sex: Male
  Weight: 21 kg

DRUGS (4)
  1. TAMIFLU [Suspect]
     Indication: INFLUENZA
     Dosage: DRUG REPORTED AS TAMIFLU DRY SYRUP 3%. DISCONTINUED.
     Route: 048
     Dates: start: 20091028, end: 20091028
  2. HOKUNALIN [Concomitant]
     Dosage: DRUG: HOKUNALIN(TULOBUTEROL HYDROCHLORIDE).
     Route: 048
     Dates: start: 20091028, end: 20091028
  3. POLARAMINE [Concomitant]
     Dosage: DRUG: POLARAMINE(D-CHLORPHENIRAMINE MALEATE).
     Route: 048
     Dates: start: 20091028, end: 20091028
  4. MUCOSAL [Concomitant]
     Dosage: DRUG: MUCOSAL(AMBROXOL HYDROCHLORIDE).
     Route: 048
     Dates: start: 20091028, end: 20091028

REACTIONS (1)
  - CONVULSION [None]
